FAERS Safety Report 4994930-X (Version None)
Quarter: 2006Q2

REPORT INFORMATION
  Report Type: 
  Country: None (occurrence: None)
  Receive Date: 20060508
  Receipt Date: 20060327
  Transmission Date: 20061013
  Serious: Yes (Hospitalization, Other)
  Sender: FDA-Public Use
  Company Number: PHBS2006FR04849

PATIENT
  Age: 31 Year
  Sex: Male

DRUGS (3)
  1. CYCLOSPORINE [Suspect]
     Indication: RENAL TRANSPLANT
     Dosage: 200 MG/DAY
     Route: 065
  2. MYCOPHENOLATE MOFETIL [Concomitant]
     Dosage: 2 G/DAY
  3. PREDNISONE [Concomitant]
     Dosage: 5 MG/DAY

REACTIONS (9)
  - APLASTIC ANAEMIA [None]
  - C-REACTIVE PROTEIN INCREASED [None]
  - INFLAMMATION [None]
  - LYMPHOPENIA [None]
  - PAIN [None]
  - PROTEIN S DEFICIENCY [None]
  - PURPURA [None]
  - SKIN LESION [None]
  - SKIN NECROSIS [None]
